FAERS Safety Report 5428047-7 (Version None)
Quarter: 2007Q3

REPORT INFORMATION
  Report Type: 
  Country: None (occurrence: None)
  Receive Date: 20070828
  Receipt Date: 20070821
  Transmission Date: 20080115
  Serious: Yes (Hospitalization)
  Sender: FDA-Public Use
  Company Number: IL-ROXANE LABORATORIES, INC-2007-BP-19621RO

PATIENT
  Age: 25 Year
  Sex: Male
  Weight: 60 kg

DRUGS (4)
  1. PAROXETINE [Suspect]
     Indication: SUICIDE ATTEMPT
     Route: 048
  2. CARBAMAZEPINE [Suspect]
     Indication: SUICIDE ATTEMPT
     Route: 048
  3. LITHIUM CARBONATE [Concomitant]
     Indication: BORDERLINE PERSONALITY DISORDER
  4. RISPERIDONE [Concomitant]
     Indication: BORDERLINE PERSONALITY DISORDER

REACTIONS (19)
  - ALANINE AMINOTRANSFERASE INCREASED [None]
  - BLOOD CREATINE PHOSPHOKINASE INCREASED [None]
  - CONVULSION [None]
  - DRUG LEVEL ABOVE THERAPEUTIC [None]
  - DRUG LEVEL INCREASED [None]
  - GAMMA-GLUTAMYLTRANSFERASE INCREASED [None]
  - HYPERNATRAEMIA [None]
  - LEUKOCYTOSIS [None]
  - LOSS OF CONSCIOUSNESS [None]
  - MYDRIASIS [None]
  - NEUROLOGICAL EXAMINATION ABNORMAL [None]
  - OVERDOSE [None]
  - PNEUMONIA ASPIRATION [None]
  - SEPSIS [None]
  - SINUS TACHYCARDIA [None]
  - SOMNOLENCE [None]
  - THROMBOCYTOPENIA [None]
  - TONIC CONVULSION [None]
  - VOMITING [None]
